FAERS Safety Report 5010996-5 (Version None)
Quarter: 2006Q2

REPORT INFORMATION
  Report Type: 
  Country: None (occurrence: None)
  Receive Date: 20060523
  Receipt Date: 20060523
  Transmission Date: 20061013
  Serious: Yes (Life-Threatening, Hospitalization)
  Sender: FDA-Public Use
  Company Number: None

PATIENT
  Sex: Male
  Weight: 106.1417 kg

DRUGS (2)
  1. CEFAZOLIN [Suspect]
     Indication: CHEST TUBE INSERTION
     Dosage: 2 GM Q 8 HR IV
     Route: 042
     Dates: start: 20060225, end: 20060310
  2. CEFAZOLIN [Suspect]
     Indication: PROPHYLAXIS
     Dosage: 2 GM Q 8 HR IV
     Route: 042
     Dates: start: 20060225, end: 20060310

REACTIONS (7)
  - ABDOMINAL DISTENSION [None]
  - CLOSTRIDIAL INFECTION [None]
  - COLECTOMY [None]
  - DIARRHOEA [None]
  - ILEOSTOMY [None]
  - TACHYCARDIA [None]
  - WHITE BLOOD CELL COUNT INCREASED [None]
